FAERS Safety Report 5986395-6 (Version None)
Quarter: 2008Q4

REPORT INFORMATION
  Report Type: 
  Country: None (occurrence: None)
  Receive Date: 20081203
  Receipt Date: 20081126
  Transmission Date: 20090506
  Serious: Yes (Other)
  Sender: FDA-Public Use
  Company Number: 2008SP024177

PATIENT
  Age: 70 Year
  Sex: Male

DRUGS (2)
  1. PEG-INTRON [Suspect]
     Indication: HEPATITIS C
     Dosage: SC
     Route: 058
     Dates: start: 20061101, end: 20070201
  2. REBETOL [Suspect]
     Indication: HEPATITIS C
     Dosage: PO
     Route: 048
     Dates: start: 20061101, end: 20070201

REACTIONS (4)
  - CEREBRAL ATROPHY [None]
  - DEMENTIA [None]
  - DEPRESSIVE SYMPTOM [None]
  - MALAISE [None]
